FAERS Safety Report 8346621-5 (Version None)
Quarter: 2012Q2

REPORT INFORMATION
  Report Type: 
  Country: None (occurrence: None)
  Receive Date: 20120509
  Receipt Date: 20120504
  Transmission Date: 20120825
  Serious: Yes (Other)
  Sender: FDA-Public Use
  Company Number: PHHY2012CA029000

PATIENT
  Sex: Female

DRUGS (9)
  1. ANALGESICS [Concomitant]
  2. FENTANYL [Concomitant]
  3. BUPROPION HCL [Concomitant]
  4. ZOMETA [Suspect]
     Indication: BREAST CANCER METASTATIC
     Dosage: 3 MG, EVERY 3 WEEKS
     Route: 042
     Dates: start: 20110322
  5. NORTRIPTYLINE HCL [Concomitant]
  6. METHADONE HCL [Concomitant]
  7. SINEMET [Concomitant]
  8. PANTOPRAZOLE [Concomitant]
  9. QUETIAPINE [Concomitant]

REACTIONS (5)
  - MOBILITY DECREASED [None]
  - HAEMOGLOBIN DECREASED [None]
  - TERMINAL STATE [None]
  - BONE MARROW TUMOUR CELL INFILTRATION [None]
  - BLOOD PRESSURE DECREASED [None]
